FAERS Safety Report 12294718 (Version 2)
Quarter: 2016Q3

REPORT INFORMATION
  Report Type: Report from Study
  Country: FR (occurrence: FR)
  Receive Date: 20160422
  Receipt Date: 20160706
  Transmission Date: 20161109
  Serious: Yes (Hospitalization, Disabling, Other)
  Sender: FDA-Public Use
  Company Number: PHHY2012FR068925

PATIENT
  Age: 59 Year
  Sex: Female

DRUGS (5)
  1. EXEMESTANE. [Concomitant]
     Active Substance: EXEMESTANE
     Indication: BREAST CANCER
     Route: 065
  2. AFINITOR [Suspect]
     Active Substance: EVEROLIMUS
     Indication: RENAL CELL CARCINOMA
     Dosage: 10 MG, QD
     Route: 065
     Dates: start: 20150214, end: 20150304
  3. AFINITOR [Suspect]
     Active Substance: EVEROLIMUS
     Indication: BREAST CANCER
     Dosage: 5 MG, QD
     Route: 065
     Dates: start: 20150318, end: 20150513
  4. AFINITOR [Suspect]
     Active Substance: EVEROLIMUS
     Indication: RENAL CANCER METASTATIC
     Dosage: UNK
     Route: 048
     Dates: start: 2010
  5. AFINITOR [Suspect]
     Active Substance: EVEROLIMUS
     Dosage: 7.5 MG, QD
     Dates: start: 20150514, end: 20151118

REACTIONS (19)
  - Stomatitis [Recovered/Resolved]
  - Feeding disorder [Recovered/Resolved]
  - Malignant neoplasm progression [Unknown]
  - Dry skin [Unknown]
  - Rash pustular [Unknown]
  - Blister [Unknown]
  - Epstein-Barr virus infection [Unknown]
  - Toxic skin eruption [Unknown]
  - Wound [Unknown]
  - Pruritus [Unknown]
  - Eczema [Unknown]
  - Oral pain [Recovered/Resolved]
  - Nausea [Recovered/Resolved]
  - Weight decreased [Recovered/Resolved]
  - Dermatitis acneiform [Unknown]
  - Aphthous ulcer [Recovered/Resolved]
  - Skin plaque [Unknown]
  - Neutropenia [Recovered/Resolved]
  - Acute generalised exanthematous pustulosis [Unknown]

NARRATIVE: CASE EVENT DATE: 2010
